FAERS Safety Report 21703524 (Version 3)
Quarter: 2023Q1

REPORT INFORMATION
  Report Type: Spontaneous
  Country: US (occurrence: US)
  Receive Date: 20221209
  Receipt Date: 20230104
  Transmission Date: 20230417
  Serious: No
  Sender: FDA-Public Use
  Company Number: US-ORGANON-O2212USA000488

PATIENT
  Sex: Female
  Weight: 125.17 kg

DRUGS (1)
  1. NEXPLANON [Suspect]
     Active Substance: ETONOGESTREL
     Indication: Contraception
     Dosage: 1 DOSAGE FORM (68 MG);LEFT UPPER ARM
     Route: 059
     Dates: start: 20221024, end: 20221201

REACTIONS (4)
  - Device breakage [Recovered/Resolved]
  - Medical device site discomfort [Recovered/Resolved]
  - Device placement issue [Recovered/Resolved]
  - Device kink [Recovered/Resolved]

NARRATIVE: CASE EVENT DATE: 20220101
